FAERS Safety Report 13044414 (Version 1)
Quarter: 2016Q4

REPORT INFORMATION
  Report Type: Spontaneous
  Country: US (occurrence: US)
  Receive Date: 20161220
  Receipt Date: 20161220
  Transmission Date: 20170207
  Serious: No
  Sender: FDA-Public Use
  Company Number: US-ROCHE-1034591

PATIENT
  Age: 78 Year
  Sex: Male

DRUGS (7)
  1. FENTANYL. [Concomitant]
     Active Substance: FENTANYL
     Indication: PAIN
     Dosage: ROUTE: PATCH
     Route: 050
     Dates: start: 20110916
  2. MARINOL (UNITED STATES) [Concomitant]
     Indication: DECREASED APPETITE
     Route: 048
     Dates: start: 20110927
  3. FUROSEMIDE. [Concomitant]
     Active Substance: FUROSEMIDE
     Indication: WEIGHT INCREASED
     Dosage: 12 TAB
     Route: 048
     Dates: start: 20111104
  4. FUROSEMIDE. [Concomitant]
     Active Substance: FUROSEMIDE
     Indication: OEDEMA
  5. ZELBORAF [Suspect]
     Active Substance: VEMURAFENIB
     Indication: METASTATIC MALIGNANT MELANOMA
     Route: 048
     Dates: start: 20111001
  6. CLEOCIN [Concomitant]
     Active Substance: CLINDAMYCIN PHOSPHATE
     Indication: RASH
     Route: 061
     Dates: start: 20111104, end: 20111201
  7. CLEOCIN [Concomitant]
     Active Substance: CLINDAMYCIN PHOSPHATE
     Indication: ERYTHEMA

REACTIONS (12)
  - Myalgia [Unknown]
  - Diarrhoea [Unknown]
  - Arthralgia [Unknown]
  - Fatigue [Unknown]
  - Rash [Recovered/Resolved]
  - Vomiting [Unknown]
  - Decreased appetite [Recovering/Resolving]
  - Dyspepsia [Unknown]
  - Sunburn [Unknown]
  - Device related infection [Recovered/Resolved]
  - Erythema [Unknown]
  - Weight increased [Recovering/Resolving]

NARRATIVE: CASE EVENT DATE: 20111003
